FAERS Safety Report 5174200-X (Version None)
Quarter: 2006Q4

REPORT INFORMATION
  Report Type: 
  Country: None (occurrence: None)
  Receive Date: 20061214
  Receipt Date: 20061130
  Transmission Date: 20070319
  Serious: Yes (Hospitalization)
  Sender: FDA-Public Use
  Company Number: FR-ELI_LILLY_AND_COMPANY-FR200612000032

PATIENT
  Age: 81 Year
  Sex: Female

DRUGS (9)
  1. FORTEO [Suspect]
     Indication: OSTEOPOROSIS
     Dosage: 20 UG, DAILY (1/D)
     Route: 058
     Dates: start: 20060705
  2. PERINDOPRIL ERBUMINE [Concomitant]
     Indication: HYPERTENSION
     Dosage: 2 MG, DAILY (1/D)
  3. DEROXAT [Concomitant]
     Dosage: 1 D/F, DAILY (1/D)
  4. LEVOTHYROXINE SODIUM [Concomitant]
     Dosage: 1 D/F, DAILY (1/D)
  5. OMEPRAZOLE [Concomitant]
     Dosage: 1 D/F, DAILY (1/D)
  6. TERCIAN [Concomitant]
     Dosage: 0.5 D/F, DAILY (1/D)
  7. SKENAN [Concomitant]
     Dosage: 2 D/F, DAILY (1/D)
  8. DISCOTRINE [Concomitant]
     Dosage: 1 D/F, DAILY (1/D)
  9. ZOLPIDEM TARTRATE [Concomitant]
     Dosage: 1 D/F, DAILY (1/D)

REACTIONS (2)
  - FATIGUE [None]
  - TACHYCARDIA [None]
